FAERS Safety Report 7518938-5 (Version None)
Quarter: 2011Q2

REPORT INFORMATION
  Report Type: 
  Country: None (occurrence: None)
  Receive Date: 20110602
  Receipt Date: 20110525
  Transmission Date: 20111010
  Serious: Yes (Hospitalization, Other)
  Sender: FDA-Public Use
  Company Number: GB-PFIZER INC-2011052733

PATIENT
  Age: 18 Year
  Sex: Male
  Weight: 90 kg

DRUGS (2)
  1. REFACTO [Suspect]
     Dosage: UNK
     Dates: start: 20091201, end: 20110224
  2. REFACTO [Suspect]
     Indication: FACTOR VIII DEFICIENCY
     Dosage: 2000 IU, 3 TIMES PER WEEK
     Route: 042
     Dates: end: 20091016

REACTIONS (1)
  - FACTOR VIII INHIBITION [None]
